FAERS Safety Report 20969885 (Version 1)
Quarter: 2022Q2

REPORT INFORMATION
  Report Type: Spontaneous
  Country: US (occurrence: US)
  Receive Date: 20220616
  Receipt Date: 20220616
  Transmission Date: 20220721
  Serious: No
  Sender: FDA-Public Use
  Company Number: US-SA-SAC20220603000220

PATIENT
  Age: 37 Year
  Sex: Female

DRUGS (1)
  1. DUPIXENT [Suspect]
     Active Substance: DUPILUMAB
     Dosage: 300 MG, OTHER
     Route: 058
     Dates: end: 202202

REACTIONS (5)
  - Arthritis [Unknown]
  - Arthralgia [Unknown]
  - Dermatitis atopic [Unknown]
  - Rash [Unknown]
  - Pruritus [Unknown]

NARRATIVE: CASE EVENT DATE: 20220201
